FAERS Safety Report 11555534 (Version 2)
Quarter: 2015Q4

REPORT INFORMATION
  Report Type: Report from Study
  Country: CA (occurrence: CA)
  Receive Date: 20150925
  Receipt Date: 20151007
  Transmission Date: 20160304
  Serious: Yes (Other)
  Sender: FDA-Public Use
  Company Number: CA-AMGEN-CANSL2015097791

PATIENT
  Age: 79 Year
  Sex: Male
  Weight: 86 kg

DRUGS (24)
  1. PROLIA [Suspect]
     Active Substance: DENOSUMAB
     Indication: OSTEOPOROSIS
     Dosage: 60 MG/ML, Q6MO
     Route: 058
     Dates: start: 201301
  2. FENTANYL TEVA [Concomitant]
     Active Substance: FENTANYL
     Dosage: 25 MUG, QH PATCH
  3. D FORTE [Concomitant]
     Dosage: 50000 IU, QD
     Route: 048
  4. CARVEDILOL. [Concomitant]
     Active Substance: CARVEDILOL
     Dosage: 3.125 MG, BID
     Route: 048
  5. EMO-CORT [Concomitant]
     Dosage: 2.5 %, BID
     Route: 061
  6. PRISTIQ EXTENDED RELEASE [Concomitant]
     Active Substance: DESVENLAFAXINE SUCCINATE
     Dosage: 50 MG, QD
     Route: 048
  7. FUROSEMIDE TEVA [Concomitant]
     Active Substance: FUROSEMIDE
     Indication: DYSPNOEA
     Dosage: 20 MG, QD (1/2 TAB BID)
     Route: 048
  8. ONEALFA [Concomitant]
     Active Substance: ALFACALCIDOL
     Dosage: 1 MUG, QD
     Route: 048
  9. VITAMIN A                          /00056001/ [Concomitant]
     Active Substance: RETINOL
     Dosage: 10000 IU (TWO CAPSULES), QD
     Route: 048
  10. APO-OXAZEPAM [Concomitant]
     Active Substance: OXAZEPAM
     Indication: INSOMNIA
     Dosage: 15 MG, AS NECESSARY
     Route: 048
  11. ACETAMINOPHEN. [Concomitant]
     Active Substance: ACETAMINOPHEN
     Indication: ARTHRITIS
     Dosage: 650 MG, TID
     Route: 048
  12. AMITRIPTYLINE [Concomitant]
     Active Substance: AMITRIPTYLINE
     Indication: PREMENSTRUAL SYNDROME
     Dosage: 10 MG, QD
     Route: 048
  13. ROSUVASTATIN [Concomitant]
     Active Substance: ROSUVASTATIN
     Dosage: 10 MG, QD
     Route: 048
  14. ADVAIR HFA [Concomitant]
     Active Substance: FLUTICASONE PROPIONATE\SALMETEROL XINAFOATE
     Dosage: 250MCG-25MCG, BID
  15. CI CAL D [Concomitant]
     Dosage: 200 IU, 4 TAB AT BREAKFAST AND 2 TAB AT LUNCH, AFTERNOON, DINNER AND BEDTIME
     Route: 048
  16. DUTASTERIDE. [Concomitant]
     Active Substance: DUTASTERIDE
     Dosage: 0.5 MG, QD
     Route: 048
  17. NASONEX [Concomitant]
     Active Substance: MOMETASONE FUROATE
     Dosage: 50 MUG (TWO SPRAYS IN EACH NOSTRIL), BID
     Route: 045
  18. PREGABALIN. [Concomitant]
     Active Substance: PREGABALIN
     Dosage: 150 MG, QD IN EVENING WITH 50MG IN MORNING
     Route: 048
  19. RAPAFLO [Concomitant]
     Active Substance: SILODOSIN
     Dosage: 8 MG, QD
     Route: 048
  20. PANTOPRAZOLE [Concomitant]
     Active Substance: PANTOPRAZOLE SODIUM
     Indication: ABDOMINAL DISCOMFORT
     Dosage: 40 MG, QD
     Route: 048
  21. DEXIRON                            /00023549/ [Concomitant]
     Dosage: 2 ML, Q3MO
     Route: 030
  22. SPIRIVA [Concomitant]
     Active Substance: TIOTROPIUM BROMIDE MONOHYDRATE
     Dosage: 18 MUG, QD
  23. RAMIPRIL. [Concomitant]
     Active Substance: RAMIPRIL
     Indication: BLOOD PRESSURE MEASUREMENT
     Dosage: 1.25 MG, BID
     Route: 048
  24. CLOPIDOGREL [Concomitant]
     Active Substance: CLOPIDOGREL BISULFATE
     Dosage: 75 MG, QD
     Route: 048

REACTIONS (1)
  - Cerebrovascular accident [Unknown]
